FAERS Safety Report 16861201 (Version 1)
Quarter: 2019Q3

REPORT INFORMATION
  Report Type: Spontaneous
  Country: US (occurrence: US)
  Receive Date: 20190805
  Receipt Date: 20190805
  Transmission Date: 20191005
  Serious: Yes (Hospitalization)
  Sender: FDA-Public Use
  Company Number: None

PATIENT
  Age: 66 Year
  Sex: Male
  Weight: 79.83 kg

DRUGS (1)
  1. HYDROCHLOROTHIAZIDE/LISINOPRIL [Suspect]
     Active Substance: HYDROCHLOROTHIAZIDE\LISINOPRIL
     Indication: HYPERTENSION
     Route: 048
     Dates: start: 20180912, end: 20181024

REACTIONS (8)
  - Nausea [None]
  - Hyponatraemia [None]
  - Vomiting [None]
  - Dizziness [None]
  - Hypophagia [None]
  - Orthostatic intolerance [None]
  - Hypovolaemia [None]
  - Hypotension [None]

NARRATIVE: CASE EVENT DATE: 20181024
